FAERS Safety Report 21363084 (Version 1)
Quarter: 2022Q3

REPORT INFORMATION
  Report Type: Spontaneous
  Country: FI (occurrence: FI)
  Receive Date: 20220922
  Receipt Date: 20220922
  Transmission Date: 20221027
  Serious: Yes (Other)
  Sender: FDA-Public Use
  Company Number: FI-CELLTRION INC.-2015FI012352

PATIENT

DRUGS (14)
  1. INFLECTRA [Suspect]
     Active Substance: INFLIXIMAB-DYYB
     Indication: Inflammatory bowel disease
     Dosage: 700 MG, UNK
     Route: 041
     Dates: start: 20150414, end: 20150414
  2. INFLECTRA [Suspect]
     Active Substance: INFLIXIMAB-DYYB
     Dosage: 700 MG, UNK
     Route: 041
     Dates: start: 20150428, end: 20150428
  3. INFLECTRA [Suspect]
     Active Substance: INFLIXIMAB-DYYB
     Dosage: 700 MG, UNK
     Route: 041
     Dates: start: 20150505, end: 20150505
  4. AZATHIOPRINE [Concomitant]
     Active Substance: AZATHIOPRINE
     Dosage: 3 TABLETS IN THE MORNING AND 2 TABLETS IN THE EVENING
  5. CIPRALEX                           /01588501/ [Concomitant]
     Dosage: 10 MG + 15 MG, 1 X 1
  6. METFORMIN HYDROCHLORIDE [Concomitant]
     Active Substance: METFORMIN HYDROCHLORIDE
     Dosage: 2 X 2
     Route: 048
  7. FUCIDIN                            /00065701/ [Concomitant]
     Dosage: UNK
  8. JANUVIA [Concomitant]
     Active Substance: SITAGLIPTIN PHOSPHATE
     Dosage: 1 X 1
     Route: 048
  9. LANTUS [Concomitant]
     Active Substance: INSULIN GLARGINE
     Dosage: 84 IU, FREQ: 1 DAY; INTERVAL:1
     Route: 058
  10. PENTASA [Concomitant]
     Active Substance: MESALAMINE
     Dosage: 1 SUPPOSITORY IN THE EVENING
  11. PENTASA [Concomitant]
     Active Substance: MESALAMINE
     Dosage: 4 TABLETS X 1
  12. VICTOZA [Concomitant]
     Active Substance: LIRAGLUTIDE
     Dosage: 1, 2 MG/DAY
     Route: 058
  13. PREDNISOLONE [Concomitant]
     Active Substance: PREDNISOLONE
     Dosage: 5 MG + 20 MG, 1 X 1
  14. SIMVASTATIN [Concomitant]
     Active Substance: SIMVASTATIN
     Dosage: 1 X 1
     Route: 048

REACTIONS (13)
  - Dizziness [Recovered/Resolved]
  - Dizziness [Recovered/Resolved]
  - Feeling abnormal [Recovered/Resolved]
  - Pyrexia [Recovered/Resolved]
  - Headache [Recovered/Resolved]
  - Hypotension [Recovered/Resolved]
  - Myalgia [Recovered/Resolved]
  - Nausea [Recovered/Resolved]
  - Muscle rigidity [Recovered/Resolved]
  - Arthropathy [Recovered/Resolved]
  - Hyperhidrosis [Recovered/Resolved]
  - Urticaria [Recovered/Resolved]
  - Vomiting [Recovered/Resolved]

NARRATIVE: CASE EVENT DATE: 20150421
